FAERS Safety Report 13844025 (Version 1)
Quarter: 2017Q3

REPORT INFORMATION
  Report Type: Spontaneous
  Country: US (occurrence: US)
  Receive Date: 20170808
  Receipt Date: 20170808
  Transmission Date: 20171127
  Serious: Yes (Hospitalization)
  Sender: FDA-Public Use
  Company Number: US-APOTEX-2017AP016277

PATIENT
  Age: 67 Year
  Sex: Male

DRUGS (7)
  1. LENVATINIB [Concomitant]
     Active Substance: LENVATINIB
     Dosage: 10 MG, UNK
     Route: 065
  2. LISINOPRIL. [Suspect]
     Active Substance: LISINOPRIL
     Indication: BLOOD PRESSURE INCREASED
     Route: 065
  3. AMLODIPINE BESYLATE. [Suspect]
     Active Substance: AMLODIPINE BESYLATE
     Indication: BLOOD PRESSURE INCREASED
     Route: 065
  4. LENVATINIB [Concomitant]
     Active Substance: LENVATINIB
     Indication: ANAPLASTIC THYROID CANCER
     Dosage: 24 MG, UNK
     Route: 065
  5. LENVATINIB [Concomitant]
     Active Substance: LENVATINIB
     Dosage: 20 MG, UNK
     Route: 065
  6. LENVATINIB [Concomitant]
     Active Substance: LENVATINIB
     Dosage: 14 MG, UNK
     Route: 065
  7. LENVATINIB [Concomitant]
     Active Substance: LENVATINIB
     Dosage: 10 MG, UNK
     Route: 065

REACTIONS (3)
  - Dehydration [Unknown]
  - Nausea [Unknown]
  - Vomiting [Unknown]
